FAERS Safety Report 4643929-1 (Version None)
Quarter: 2005Q2

REPORT INFORMATION
  Report Type: 
  Country: None (occurrence: None)
  Receive Date: 20050425
  Receipt Date: 20010301
  Transmission Date: 20051028
  Serious: Yes (Other)
  Sender: FDA-Public Use
  Company Number: FR-MERCK-01036013

PATIENT
  Age: 87 Year
  Sex: Female

DRUGS (6)
  1. HYZAAR [Suspect]
     Indication: HYPERTENSION
     Route: 048
     Dates: start: 20001101
  2. HYDROMORPHONE HYDROCHLORIDE [Suspect]
     Indication: PAIN
     Route: 048
     Dates: start: 20010224, end: 20010225
  3. HYDROMORPHONE HYDROCHLORIDE [Suspect]
     Route: 048
     Dates: start: 20010226, end: 20010227
  4. MIANSERIN HYDROCHLORIDE [Concomitant]
     Route: 065
  5. ACETAMINOPHEN [Concomitant]
     Route: 065
  6. ASPIRIN [Concomitant]
     Route: 065

REACTIONS (3)
  - CIRCULATORY COLLAPSE [None]
  - DRUG INTERACTION [None]
  - HYPOTENSION [None]
